FAERS Safety Report 8476984-1 (Version None)
Quarter: 2012Q2

REPORT INFORMATION
  Report Type: 
  Country: None (occurrence: None)
  Receive Date: 20120629
  Receipt Date: 20091022
  Transmission Date: 20120825
  Serious: No
  Sender: FDA-Public Use
  Company Number: 2009BI034442

PATIENT
  Age: 46 Year
  Sex: Female

DRUGS (4)
  1. TYSABRI [Suspect]
     Indication: MULTIPLE SCLEROSIS
     Route: 042
     Dates: start: 20080915, end: 20101021
  2. AVONEX [Concomitant]
     Indication: MULTIPLE SCLEROSIS
     Route: 030
     Dates: start: 20080620
  3. TYSABRI [Suspect]
     Route: 042
     Dates: start: 20110505, end: 20120518
  4. AVONEX [Concomitant]
     Route: 030
     Dates: start: 20080801

REACTIONS (2)
  - DECREASED IMMUNE RESPONSIVENESS [None]
  - ANAEMIA [None]
